FAERS Safety Report 9495849 (Version 1)
Quarter: 2013Q3

REPORT INFORMATION
  Report Type: Spontaneous
  Country: LB (occurrence: LB)
  Receive Date: 20130903
  Receipt Date: 20130903
  Transmission Date: 20140515
  Serious: Yes (Death, Other)
  Sender: FDA-Public Use
  Company Number: LB-BAXTER-2013BAX033982

PATIENT
  Age: 64 Year
  Sex: Female

DRUGS (6)
  1. ENDOXAN VIALS 1G VIAL [Suspect]
     Indication: INVASIVE DUCTAL BREAST CARCINOMA
     Route: 065
  2. ENDOXAN VIALS 1G VIAL [Suspect]
     Indication: METASTASES TO BLADDER
  3. ADRIAMYCIN [Suspect]
     Indication: INVASIVE DUCTAL BREAST CARCINOMA
     Route: 065
  4. ADRIAMYCIN [Suspect]
     Indication: METASTASES TO BLADDER
  5. TAXOL [Suspect]
     Indication: INVASIVE DUCTAL BREAST CARCINOMA
     Route: 065
  6. ZOMETA [Suspect]
     Indication: METASTASES TO BLADDER
     Route: 065

REACTIONS (7)
  - Cardio-respiratory arrest [Fatal]
  - Septic shock [Not Recovered/Not Resolved]
  - Pneumonia [Not Recovered/Not Resolved]
  - Metastases to bladder [Unknown]
  - Neutropenia [Unknown]
  - Urinary bladder haemorrhage [Unknown]
  - Haematuria [Recovered/Resolved]
